FAERS Safety Report 8969630 (Version 1)
Quarter: 2012Q4

REPORT INFORMATION
  Report Type: 
  Country: US (occurrence: US)
  Receive Date: 20121218
  Receipt Date: 20121218
  Transmission Date: 20130627
  Serious: No
  Sender: FDA-Public Use
  Company Number: US-BAYER-2012-132474

PATIENT
  Age: 74 Year
  Sex: Female

DRUGS (5)
  1. FINACEA [Suspect]
     Dosage: APPLY TO FACE, BID
     Route: 061
     Dates: start: 20120918
  2. VIVELLE-DOT [Concomitant]
     Dosage: 1 PATCH ONTO THE WEEK, BID
     Dates: start: 20121003
  3. POLYETHYLENE GLYCOL [Concomitant]
     Dosage: ONCE DAILY, PRN
     Dates: start: 20121022
  4. ATORVASTATIN [Concomitant]
     Dosage: 1 DF, HS
     Route: 048
     Dates: start: 20120912
  5. CIPROFLOXACIN [Concomitant]
     Dosage: 1 DF, EVERY 12 HOURS
     Route: 048
     Dates: start: 20120302

REACTIONS (2)
  - Drug ineffective [None]
  - Rosacea [None]
